FAERS Safety Report 5699810-2 (Version None)
Quarter: 2008Q2

REPORT INFORMATION
  Report Type: 
  Country: None (occurrence: None)
  Receive Date: 20080410
  Receipt Date: 20080208
  Transmission Date: 20081010
  Serious: Yes (Death)
  Sender: FDA-Public Use
  Company Number: CH-NOVOPROD-272028

PATIENT
  Age: 53 Year

DRUGS (1)
  1. NOVOSEVEN [Suspect]
     Dosage: 300 UG/KG, UNK

REACTIONS (1)
  - THROMBOSIS [None]
